FAERS Safety Report 8557010-2 (Version None)
Quarter: 2012Q3

REPORT INFORMATION
  Report Type: 
  Country: None (occurrence: None)
  Receive Date: 20120801
  Receipt Date: 20120723
  Transmission Date: 20120928
  Serious: Yes (Other)
  Sender: FDA-Public Use
  Company Number: TR-ROCHE-1092816

PATIENT
  Sex: Female

DRUGS (2)
  1. XELODA [Suspect]
     Indication: COLON CANCER
     Dosage: 500 MG 2
     Route: 048
     Dates: start: 20110216
  2. XELODA [Suspect]
     Dosage: 150 MG 3
     Route: 048
     Dates: start: 20110216

REACTIONS (2)
  - FATIGUE [None]
  - HAND FRACTURE [None]
